FAERS Safety Report 25953196 (Version 1)
Quarter: 2025Q4

REPORT INFORMATION
  Report Type: Spontaneous
  Country: US (occurrence: US)
  Receive Date: 20251023
  Receipt Date: 20251023
  Transmission Date: 20260117
  Serious: No
  Sender: ELI LILLY AND COMPANY
  Company Number: US-ELI_LILLY_AND_COMPANY-US202510017990

PATIENT
  Age: 22 Year
  Sex: Male

DRUGS (1)
  1. TALTZ [Suspect]
     Active Substance: IXEKIZUMAB
     Indication: Product used for unknown indication
     Dosage: 80 MG, OTHER(EVERY FOUR WEEKS)
     Route: 065
     Dates: start: 2024

REACTIONS (2)
  - Product dose omission issue [Unknown]
  - Psoriasis [Unknown]
